FAERS Safety Report 12778898 (Version 1)
Quarter: 2016Q3

REPORT INFORMATION
  Report Type: Spontaneous
  Country: US (occurrence: US)
  Receive Date: 20160926
  Receipt Date: 20160926
  Transmission Date: 20161109
  Serious: No
  Sender: FDA-Public Use
  Company Number: US-JAZZ-2016-US-011009

PATIENT
  Age: 29 Year
  Sex: Female

DRUGS (22)
  1. DULERA [Concomitant]
     Active Substance: FORMOTEROL FUMARATE DIHYDRATE\MOMETASONE FUROATE
  2. SYNTHROID [Concomitant]
     Active Substance: LEVOTHYROXINE SODIUM
  3. CELEXA [Concomitant]
     Active Substance: CITALOPRAM HYDROBROMIDE
  4. PROPRANOLOL [Concomitant]
     Active Substance: PROPRANOLOL\PROPRANOLOL HYDROCHLORIDE
  5. LEVOTHYROXINE. [Concomitant]
     Active Substance: LEVOTHYROXINE
  6. BENTYL [Concomitant]
     Active Substance: DICYCLOMINE HYDROCHLORIDE
  7. CYMBALTA [Concomitant]
     Active Substance: DULOXETINE HYDROCHLORIDE
  8. PAXIL [Concomitant]
     Active Substance: PAROXETINE HYDROCHLORIDE
  9. LO LOESTRIN FE [Concomitant]
     Active Substance: ETHINYL ESTRADIOL\NORETHINDRONE ACETATE
  10. NEURONTIN [Concomitant]
     Active Substance: GABAPENTIN
  11. XOPENEX HFA [Concomitant]
     Active Substance: LEVALBUTEROL TARTRATE
  12. ELMIRON [Concomitant]
     Active Substance: PENTOSAN POLYSULFATE SODIUM
  13. XYREM [Suspect]
     Active Substance: SODIUM OXYBATE
     Indication: CATAPLEXY
     Dosage: 3 G, BID
     Route: 048
     Dates: start: 201504, end: 201509
  14. XYREM [Suspect]
     Active Substance: SODIUM OXYBATE
     Dosage: 4.5 G, BID
     Route: 048
     Dates: start: 201509
  15. MARIJUANA [Concomitant]
     Active Substance: CANNABIS SATIVA SUBSP. INDICA TOP
  16. LORAZEPAM. [Concomitant]
     Active Substance: LORAZEPAM
  17. LYRICA [Concomitant]
     Active Substance: PREGABALIN
  18. XYREM [Suspect]
     Active Substance: SODIUM OXYBATE
     Indication: NARCOLEPSY
     Dosage: 2.5 G, BID
     Route: 048
     Dates: start: 201409, end: 201504
  19. PROTONIX [Concomitant]
     Active Substance: PANTOPRAZOLE SODIUM
  20. NUVIGIL [Concomitant]
     Active Substance: ARMODAFINIL
  21. VENTOLIN HFA [Concomitant]
     Active Substance: ALBUTEROL SULFATE
  22. SINGULAIR [Concomitant]
     Active Substance: MONTELUKAST SODIUM

REACTIONS (7)
  - Motor dysfunction [Unknown]
  - Fall [Recovered/Resolved]
  - Wrong technique in product usage process [Unknown]
  - Feeling abnormal [Unknown]
  - Speech disorder [Unknown]
  - Gait disturbance [Unknown]
  - Abnormal behaviour [Unknown]

NARRATIVE: CASE EVENT DATE: 201606
